FAERS Safety Report 7932117-9 (Version None)
Quarter: 2011Q4

REPORT INFORMATION
  Report Type: 
  Country: None (occurrence: None)
  Receive Date: 20111121
  Receipt Date: 20111115
  Transmission Date: 20120403
  Serious: Yes (Life-Threatening)
  Sender: FDA-Public Use
  Company Number: CA-ASTRAZENECA-2011SE69108

PATIENT
  Age: 39 Year
  Sex: Female

DRUGS (2)
  1. NOVO-TOPIRAMATE [Suspect]
     Route: 048
  2. ZOMIG-ZMT [Suspect]
     Route: 048

REACTIONS (2)
  - PANIC ATTACK [None]
  - LOSS OF CONSCIOUSNESS [None]
